FAERS Safety Report 20206514 (Version 1)
Quarter: 2021Q4

REPORT INFORMATION
  Report Type: Spontaneous
  Country: US (occurrence: US)
  Receive Date: 20211220
  Receipt Date: 20211220
  Transmission Date: 20220304
  Serious: No
  Sender: FDA-Public Use
  Company Number: US-NOVEN PHARMACEUTICALS, INC.-2020US007896

PATIENT
  Age: 59 Year
  Sex: Female
  Weight: 111.11 kg

DRUGS (9)
  1. MINIVELLE [Suspect]
     Active Substance: ESTRADIOL
     Indication: Menopausal symptoms
     Dosage: 0.025MG, ALTERNATING WITH THE MINIVELLE 0.0375MG, UNK
     Route: 062
  2. MINIVELLE [Suspect]
     Active Substance: ESTRADIOL
     Indication: Atrophic vulvovaginitis
     Dosage: 0.05 MG, CUT IN HALF OR IN TO 2/3RD SIZE, CHANGING EVERY 3 DAYS
     Route: 062
     Dates: start: 202011
  3. MINIVELLE [Suspect]
     Active Substance: ESTRADIOL
     Dosage: 0.037 MG
     Route: 062
  4. MINIVELLE [Suspect]
     Active Substance: ESTRADIOL
     Dosage: 0.05MG, ALTERNATING WITH THE MINIVELLE 0.0375MG, CHANGING EVERY 4 DAYS
     Route: 062
  5. VITAMIN D NOS [Concomitant]
     Active Substance: VITAMIN D NOS
     Indication: Product used for unknown indication
     Dosage: UNK
  6. FISH OIL [Concomitant]
     Active Substance: FISH OIL
     Indication: Product used for unknown indication
     Dosage: EVERY ONCE IN A WHILE
  7. MAGNESIUM [Concomitant]
     Active Substance: MAGNESIUM
     Indication: Product used for unknown indication
     Dosage: DAILY EXCEPT ON DAYS WHEN SHE APPLIED NEW MINIVELLE PATCH
  8. ADDERALL [Concomitant]
     Active Substance: AMPHETAMINE ASPARTATE\AMPHETAMINE SULFATE\DEXTROAMPHETAMINE SACCHARATE\DEXTROAMPHETAMINE SULFATE
     Indication: Product used for unknown indication
     Dosage: 10 MG, DAILY
  9. CYANOCOBALAMIN [Concomitant]
     Active Substance: CYANOCOBALAMIN
     Indication: Vitamin B12 deficiency
     Dosage: UNK, DAILY

REACTIONS (6)
  - Waist circumference decreased [Unknown]
  - Overdose [Not Recovered/Not Resolved]
  - Therapeutic product effect incomplete [Unknown]
  - Wrong technique in product usage process [Recovered/Resolved]
  - Intentional product use issue [Not Recovered/Not Resolved]
  - Product adhesion issue [Not Recovered/Not Resolved]

NARRATIVE: CASE EVENT DATE: 20201001
